FAERS Safety Report 6278286-0 (Version None)
Quarter: 2009Q3

REPORT INFORMATION
  Report Type: 
  Country: None (occurrence: None)
  Receive Date: 20090722
  Receipt Date: 20090714
  Transmission Date: 20100115
  Serious: Yes (Hospitalization)
  Sender: FDA-Public Use
  Company Number: US-AVENTIS-200910802US

PATIENT
  Sex: Female
  Weight: 46.36 kg

DRUGS (8)
  1. LOVENOX [Suspect]
     Route: 058
     Dates: start: 20090127, end: 20090129
  2. LOVENOX [Suspect]
     Route: 058
     Dates: start: 20081230, end: 20090113
  3. LOVENOX [Suspect]
     Route: 058
     Dates: start: 20081124, end: 20081203
  4. ASPIRIN [Concomitant]
     Indication: CAROTID ARTERY STENOSIS
     Dates: start: 20080101
  5. COUMADIN [Concomitant]
     Dates: start: 20090101
  6. CALTRATE + D                       /00944201/ [Concomitant]
     Indication: OSTEOPOROSIS
     Dosage: DOSE QUANTITY: 2
  7. LOPRESSOR [Concomitant]
     Indication: HYPERTENSION
     Dosage: DOSE: 1 AND 1/2 OF 50 MG
  8. LASIX [Concomitant]

REACTIONS (2)
  - ASTHENIA [None]
  - MALNUTRITION [None]
